FAERS Safety Report 4767061-1 (Version None)
Quarter: 2005Q3

REPORT INFORMATION
  Report Type: 
  Country: None (occurrence: None)
  Receive Date: 20050908
  Receipt Date: 20050908
  Transmission Date: 20060218
  Serious: Yes (Hospitalization)
  Sender: FDA-Public Use
  Company Number: None

PATIENT
  Age: 95 Year
  Sex: Female
  Weight: 58 kg

DRUGS (10)
  1. INDOMETHACIN [Suspect]
     Indication: OSTEOARTHRITIS
     Dosage: 50 MG QD PRN
  2. INDOMETHACIN [Suspect]
     Indication: PAIN
     Dosage: 50 MG QD PRN
  3. ASPIRIN [Suspect]
     Indication: CEREBROVASCULAR ACCIDENT
     Dosage: 81 MG QD [CHRONIC]
  4. DIGOXIN [Concomitant]
  5. AMLODIPINE [Concomitant]
  6. PLAVIX [Concomitant]
  7. SYNTHROID [Concomitant]
  8. VICODIN [Concomitant]
  9. AZOPT [Concomitant]
  10. CYSTEAMINE [Concomitant]

REACTIONS (1)
  - GASTRIC ULCER HAEMORRHAGE [None]
